FAERS Safety Report 10870010 (Version 5)
Quarter: 2015Q2

REPORT INFORMATION
  Report Type: Spontaneous
  Country: US (occurrence: US)
  Receive Date: 20150226
  Receipt Date: 20150525
  Transmission Date: 20150821
  Serious: Yes (Other)
  Sender: FDA-Public Use
  Company Number: US-JNJFOC-20141108933

PATIENT

DRUGS (1)
  1. INFLIXIMAB, RECOMBINANT [Suspect]
     Active Substance: INFLIXIMAB
     Indication: COLITIS ULCERATIVE
     Route: 042
     Dates: start: 2005, end: 200906

REACTIONS (27)
  - Hepatic neoplasm [Unknown]
  - Cytomegalovirus colitis [Unknown]
  - Oral candidiasis [Unknown]
  - Device related infection [Unknown]
  - Pneumonitis [Unknown]
  - Mental status changes [Unknown]
  - Herpes zoster [Unknown]
  - Cellulitis [Unknown]
  - Clostridium difficile infection [Unknown]
  - Staphylococcal abscess [Unknown]
  - Histoplasmosis disseminated [Unknown]
  - Thrombocytopenia [Unknown]
  - Thrombosis [Unknown]
  - Nasopharyngitis [Unknown]
  - Procedural intestinal perforation [Unknown]
  - Infusion related reaction [Unknown]
  - Sinusitis [Unknown]
  - Urinary tract infection [Unknown]
  - Neuropathy peripheral [Unknown]
  - Extranodal marginal zone B-cell lymphoma (MALT type) [Unknown]
  - Squamous cell carcinoma [Unknown]
  - Pneumonia [Unknown]
  - Cryptosporidiosis infection [Unknown]
  - Epstein-Barr virus associated lymphoma [Unknown]
  - Transaminases increased [Unknown]
  - Gastrointestinal haemorrhage [Unknown]
  - Enterococcal sepsis [Unknown]
